FAERS Safety Report 9475907 (Version 1)
Quarter: 2013Q3

REPORT INFORMATION
  Report Type: Spontaneous
  Country: US (occurrence: US)
  Receive Date: 20130826
  Receipt Date: 20130826
  Transmission Date: 20140515
  Serious: Yes (Hospitalization)
  Sender: FDA-Public Use
  Company Number: US-BAYER-2013-102411

PATIENT
  Age: 31 Year
  Sex: Female
  Weight: 63.49 kg

DRUGS (3)
  1. YASMIN [Suspect]
  2. ALBUTEROL INHALER [Concomitant]
     Dosage: 90 MCG
     Dates: start: 20060109
  3. PROMETHAZINE W/CODEINE [Concomitant]
     Dosage: UNK
     Dates: start: 20060109

REACTIONS (1)
  - Pulmonary embolism [None]
